FAERS Safety Report 10337008 (Version 1)
Quarter: 2014Q3

REPORT INFORMATION
  Report Type: Spontaneous
  Country: US (occurrence: US)
  Receive Date: 20140723
  Receipt Date: 20140723
  Transmission Date: 20150326
  Serious: Yes (Other)
  Sender: FDA-Public Use
  Company Number: US-PFIZER INC-2014205127

PATIENT
  Age: 51 Year
  Sex: Female
  Weight: 108.84 kg

DRUGS (4)
  1. HYZAAR [Concomitant]
     Active Substance: HYDROCHLOROTHIAZIDE\LOSARTAN POTASSIUM
     Dosage: 25 MG/100MG, DAILY
  2. POTASSIUM [Concomitant]
     Active Substance: POTASSIUM
     Dosage: 30 MG, DAILY
  3. LASIX [Concomitant]
     Active Substance: FUROSEMIDE
     Dosage: 20 MG, UNK
  4. DILANTIN-125 [Suspect]
     Active Substance: PHENYTOIN
     Indication: CONVULSION
     Dosage: 300MG IN MORNING AND 200MG AT NIGHT,
     Dates: start: 1999

REACTIONS (1)
  - Hypoacusis [Unknown]

NARRATIVE: CASE EVENT DATE: 2001
